FAERS Safety Report 4521014-7 (Version None)
Quarter: 2004Q4

REPORT INFORMATION
  Report Type: 
  Country: None (occurrence: None)
  Receive Date: 20041206
  Receipt Date: 20041125
  Transmission Date: 20050328
  Serious: Yes (Life-Threatening)
  Sender: FDA-Public Use
  Company Number: 2003-104643-NL

PATIENT
  Age: 68 Year
  Sex: Male

DRUGS (5)
  1. DANAPAROID SODIUM [Suspect]
     Indication: ANGINA UNSTABLE
     Dosage: 7500 ANTI_XA/533 ANTI_XA Q1HR/1500 ANTI_XA ONCE/1500 ANTI_XA ONCE/760 ANTI_XA Q1HR INTRAVENOUS BOLUS
  2. DANAPAROID SODIUM [Suspect]
     Indication: ANTICOAGULANT THERAPY
     Dosage: 7500 ANTI_XA/533 ANTI_XA Q1HR/1500 ANTI_XA ONCE/1500 ANTI_XA ONCE/760 ANTI_XA Q1HR INTRAVENOUS BOLUS
  3. HEPARIN SODIUM [Suspect]
     Indication: ANGINA UNSTABLE
     Dosage: DF
  4. HEPARIN SODIUM [Suspect]
     Indication: ANTICOAGULANT THERAPY
     Dosage: DF
  5. APROTININ [Concomitant]

REACTIONS (12)
  - ARTERIAL BYPASS OPERATION [None]
  - CORONARY ARTERY THROMBOSIS [None]
  - CORONARY REVASCULARISATION [None]
  - DRUG INEFFECTIVE [None]
  - DRUG INTERACTION [None]
  - ELECTROCARDIOGRAM ST SEGMENT ELEVATION [None]
  - HEPARIN-INDUCED THROMBOCYTOPENIA [None]
  - MYOCARDIAL INFARCTION [None]
  - PERICARDIAL FIBROSIS [None]
  - PLATELET AGGREGATION INCREASED [None]
  - POST PROCEDURAL COMPLICATION [None]
  - PROCEDURAL COMPLICATION [None]
